FAERS Safety Report 17922784 (Version 1)
Quarter: 2020Q2

REPORT INFORMATION
  Report Type: Spontaneous
  Country: SI (occurrence: SI)
  Receive Date: 20200622
  Receipt Date: 20200622
  Transmission Date: 20200714
  Serious: Yes (Death, Other)
  Sender: FDA-Public Use
  Company Number: SI-BAYER-2020-110127

PATIENT
  Age: 59 Year
  Sex: Male

DRUGS (3)
  1. STIVARGA [Suspect]
     Active Substance: REGORAFENIB
     Indication: HEPATOCELLULAR CARCINOMA
     Dosage: 120 MG, QD (FOR 3 WEEKS, FOLLOWED BY 1 WEEK WITHOUT TREATMENT)
  2. NEXAVAR [Suspect]
     Active Substance: SORAFENIB
     Dosage: 400 MG, BID
  3. STIVARGA [Suspect]
     Active Substance: REGORAFENIB
     Indication: HEPATOCELLULAR CARCINOMA
     Dosage: 80 MG, QD (FOR 3 WEEKS, FOLLOWED BY 1 WEEK WITHOUT TREATMENT)

REACTIONS (12)
  - Rash maculo-papular [Recovering/Resolving]
  - Hepatic function abnormal [None]
  - Pain [None]
  - Urosepsis [Fatal]
  - Hypertension [Recovering/Resolving]
  - General physical health deterioration [None]
  - Hepatocellular carcinoma [None]
  - Erythema [Recovering/Resolving]
  - Mouth ulceration [Recovering/Resolving]
  - Palmar-plantar erythrodysaesthesia syndrome [Recovering/Resolving]
  - Diarrhoea [Recovering/Resolving]
  - Palmar-plantar erythrodysaesthesia syndrome [None]
